FAERS Safety Report 6422716-8 (Version None)
Quarter: 2009Q4

REPORT INFORMATION
  Report Type: 
  Country: None (occurrence: None)
  Receive Date: 20091102
  Receipt Date: 20091022
  Transmission Date: 20100525
  Serious: Yes (Other)
  Sender: FDA-Public Use
  Company Number: JP-JNJFOC-20091005343

PATIENT
  Age: 58 Year
  Sex: Female

DRUGS (5)
  1. RISPERDAL [Suspect]
     Route: 048
  2. RISPERDAL [Suspect]
     Indication: SCHIZOPHRENIA
     Route: 048
  3. BARNETIL [Concomitant]
     Indication: SCHIZOPHRENIA
     Route: 048
  4. LEVOTOMIN [Concomitant]
     Indication: SCHIZOPHRENIA
     Route: 048
  5. VEGETAMIN-B [Concomitant]
     Indication: SCHIZOPHRENIA
     Route: 048

REACTIONS (3)
  - DYSURIA [None]
  - OEDEMA PERIPHERAL [None]
  - URINARY RETENTION [None]
